FAERS Safety Report 23736652 (Version 1)
Quarter: 2024Q2

REPORT INFORMATION
  Report Type: Spontaneous
  Country: US (occurrence: US)
  Receive Date: 20240412
  Receipt Date: 20240412
  Transmission Date: 20240716
  Serious: No
  Sender: FDA-Public Use
  Company Number: US-PFIZER INC-202400083960

PATIENT
  Age: 52 Year
  Sex: Female
  Weight: 135.17 kg

DRUGS (1)
  1. DESVENLAFAXINE SUCCINATE [Suspect]
     Active Substance: DESVENLAFAXINE SUCCINATE
     Indication: Depression
     Dosage: 50MG ONCE A DAY
     Dates: start: 2012

REACTIONS (2)
  - Aggression [Unknown]
  - Depressed mood [Unknown]
